FAERS Safety Report 20007099 (Version 2)
Quarter: 2021Q4

REPORT INFORMATION
  Report Type: Spontaneous
  Country: GB (occurrence: None)
  Receive Date: 20211028
  Receipt Date: 20211109
  Transmission Date: 20220304
  Serious: Yes (Other)
  Sender: FDA-Public Use
  Company Number: 2021A782170

PATIENT
  Age: 74 Year
  Sex: Male
  Weight: 104.8 kg

DRUGS (9)
  1. DAPAGLIFLOZIN [Suspect]
     Active Substance: DAPAGLIFLOZIN
     Indication: Cardiac failure
     Route: 048
     Dates: start: 20211008, end: 20211010
  2. BISOPROLOL [Concomitant]
     Active Substance: BISOPROLOL
     Indication: Atrial fibrillation
     Dosage: 2.5MG UNKNOWN
     Route: 048
  3. BISOPROLOL [Concomitant]
     Active Substance: BISOPROLOL
     Indication: Cardiac failure
     Dosage: 2.5MG UNKNOWN
     Route: 048
  4. FAMOTIDINE [Concomitant]
     Active Substance: FAMOTIDINE
     Indication: Gastrooesophageal reflux disease
     Dosage: 40.0MG UNKNOWN
     Route: 048
  5. YALTORMIN [Concomitant]
     Indication: Gastrooesophageal reflux disease
     Dosage: 2000.0MG UNKNOWN
     Route: 048
  6. TAMSULOSEN [Concomitant]
     Indication: Gastrooesophageal reflux disease
     Dosage: 400.0MG UNKNOWN
     Route: 048
  7. FINASTERIDE [Concomitant]
     Active Substance: FINASTERIDE
     Indication: Gastrooesophageal reflux disease
     Dosage: 5.0MG UNKNOWN
     Route: 048
  8. BUMETANECLE [Concomitant]
     Indication: Gastrooesophageal reflux disease
     Dosage: 3.0MG UNKNOWN
     Route: 048
  9. CANDESARTAN [Concomitant]
     Active Substance: CANDESARTAN
     Indication: Gastrooesophageal reflux disease
     Dosage: 4.0MG UNKNOWN
     Route: 048

REACTIONS (2)
  - Panic attack [Recovered/Resolved]
  - Nightmare [Unknown]

NARRATIVE: CASE EVENT DATE: 20211008
